FAERS Safety Report 7871439-7 (Version None)
Quarter: 2011Q4

REPORT INFORMATION
  Report Type: 
  Country: None (occurrence: None)
  Receive Date: 20111027
  Receipt Date: 20111013
  Transmission Date: 20120403
  Serious: Yes (Other)
  Sender: FDA-Public Use
  Company Number: NGX_00645_2011

PATIENT
  Age: 66 Year
  Sex: Female

DRUGS (1)
  1. QUTENZA [Suspect]
     Indication: NEURALGIA
     Dosage: 3 DF 2X, (PATCH) TOPICAL
     Route: 061
     Dates: start: 20111003

REACTIONS (2)
  - NEURALGIA [None]
  - ASTHMA [None]
